FAERS Safety Report 8977522 (Version 1)
Quarter: 2012Q4

REPORT INFORMATION
  Report Type: Report from Study
  Country: JP (occurrence: JP)
  Receive Date: 20121220
  Receipt Date: 20121220
  Transmission Date: 20130627
  Serious: Yes (Other)
  Sender: FDA-Public Use
  Company Number: JP-VERTEX PHARMACEUTICALS INC.-2012-026430

PATIENT
  Age: 64 Year
  Sex: Male

DRUGS (10)
  1. VX-950 (TELAPREVIR) [Suspect]
     Indication: CHRONIC HEPATITIS C
     Dosage: 2250 mg, qd
     Route: 048
     Dates: start: 20120827, end: 20120909
  2. VX-950 (TELAPREVIR) [Suspect]
     Dosage: 1500 mg, qd
     Route: 048
     Dates: start: 20120910, end: 20120923
  3. VX-950 (TELAPREVIR) [Suspect]
     Dosage: 1000 mg, qd
     Route: 048
     Dates: start: 20120924, end: 20121111
  4. RIBAVIRIN [Suspect]
     Indication: CHRONIC HEPATITIS C
     Dosage: 800 mg, qd
     Route: 048
     Dates: start: 20120827, end: 20120909
  5. RIBAVIRIN [Suspect]
     Dosage: 400 mg, qd
     Route: 048
     Dates: start: 20120910
  6. PEGINTERFERON ALFA-2B [Suspect]
     Indication: CHRONIC HEPATITIS C
     Dosage: 100 ?g, qw
     Route: 058
     Dates: start: 20120827
  7. PURSENNIDE                         /00571902/ [Concomitant]
     Dosage: 12 mg, prn
     Route: 048
  8. GLYCERIN                           /00200601/ [Concomitant]
     Dosage: 60 ml, prn
     Route: 054
  9. MAGMITT [Concomitant]
     Dosage: 1980 mg, qd
     Route: 048
  10. MAGMITT [Concomitant]
     Dosage: 990 mg, qd
     Route: 048
     Dates: start: 20121029

REACTIONS (1)
  - Orthostatic hypotension [Not Recovered/Not Resolved]
